FAERS Safety Report 9382164 (Version 2)
Quarter: 2013Q3

REPORT INFORMATION
  Report Type: Report from Study
  Country: US (occurrence: US)
  Receive Date: 20130703
  Receipt Date: 20130801
  Transmission Date: 20140515
  Serious: Yes (Other)
  Sender: FDA-Public Use
  Company Number: US-JNJFOC-20130617936

PATIENT
  Age: 63 Year
  Sex: Male
  Weight: 96.16 kg

DRUGS (11)
  1. REMICADE [Suspect]
     Indication: ANKYLOSING SPONDYLITIS
     Route: 042
     Dates: start: 20110606
  2. REMICADE [Suspect]
     Indication: ANKYLOSING SPONDYLITIS
     Route: 042
     Dates: start: 20130204, end: 20130204
  3. ALLOPURINOL [Concomitant]
     Indication: GOUT
     Route: 048
  4. EXFORGE [Concomitant]
     Indication: RENAL DISORDER
     Dosage: 5-160 MG
     Route: 048
  5. EXFORGE [Concomitant]
     Indication: BLOOD PRESSURE
     Dosage: 5-160 MG
     Route: 048
  6. GEMFIBROZIL [Concomitant]
     Indication: BLOOD TRIGLYCERIDES
     Dosage: 5-160 MG
     Route: 048
  7. JANUMET [Concomitant]
     Indication: DIABETES MELLITUS
     Dosage: 5-160 MG
     Route: 048
  8. XALATAN [Concomitant]
     Indication: ABNORMAL SENSATION IN EYE
     Route: 047
  9. ASPIRIN [Concomitant]
     Route: 048
  10. NIACIN [Concomitant]
     Indication: BLOOD CHOLESTEROL
     Route: 065
  11. METAMUCIL [Concomitant]
     Indication: HAEMORRHOIDS
     Route: 065

REACTIONS (5)
  - Squamous cell carcinoma [Not Recovered/Not Resolved]
  - Nephrolithiasis [Recovered/Resolved]
  - Hypersensitivity [Recovered/Resolved]
  - Infusion related reaction [Recovered/Resolved]
  - Nausea [Unknown]
